FAERS Safety Report 8923021 (Version 2)
Quarter: 2013Q1

REPORT INFORMATION
  Report Type: Spontaneous
  Country: US (occurrence: None)
  Receive Date: 20121115
  Receipt Date: 20121129
  Transmission Date: 20140127
  Serious: Yes (Life-Threatening, Hospitalization, Other)
  Sender: FDA-Public Use
  Company Number: IMP_06068_2012

PATIENT
  Age: 12 Year
  Sex: Female

DRUGS (1)
  1. MINOCYCLINE [Suspect]
     Indication: ACNE
     Dosage: (DF)  (3 WEEKS UNTIL NOT CONTINUING)

REACTIONS (9)
  - Headache [None]
  - Nausea [None]
  - Malaise [None]
  - Pupillary reflex impaired [None]
  - VIth nerve paralysis [None]
  - Papilloedema [None]
  - Retinal exudates [None]
  - Optic atrophy [None]
  - Eye haemorrhage [None]
